FAERS Safety Report 9681237 (Version 1)
Quarter: 2013Q4

REPORT INFORMATION
  Report Type: Spontaneous
  Country: US (occurrence: None)
  Receive Date: 20131108
  Receipt Date: 20131108
  Transmission Date: 20140711
  Serious: No
  Sender: FDA-Public Use
  Company Number: None

PATIENT
  Age: 30 Year
  Sex: Female
  Weight: 96.16 kg

DRUGS (1)
  1. LIALDA [Suspect]
     Indication: CROHN^S DISEASE
     Dosage: JULY TO MID AUGUST 2013 ?3 PILLS ONCE DAILY TAKEN BY MOUTH
     Route: 048

REACTIONS (4)
  - Alopecia [None]
  - Diarrhoea haemorrhagic [None]
  - Abdominal pain upper [None]
  - Weight decreased [None]
